FAERS Safety Report 9369377 (Version 2)
Quarter: 2013Q3

REPORT INFORMATION
  Report Type: Report from Study
  Country: DE (occurrence: DE)
  Receive Date: 20130626
  Receipt Date: 20130802
  Transmission Date: 20140515
  Serious: Yes (Hospitalization)
  Sender: FDA-Public Use
  Company Number: DE-ROCHE-1241598

PATIENT
  Age: 73 Year
  Sex: Female
  Weight: 57 kg

DRUGS (9)
  1. BEVACIZUMAB [Suspect]
     Indication: COLON CANCER
     Route: 042
     Dates: start: 20130522, end: 20130522
  2. FLUOROURACIL [Suspect]
     Indication: COLON CANCER
     Route: 042
     Dates: start: 20130410, end: 20130528
  3. OXALIPLATIN [Suspect]
     Indication: COLON CANCER
     Route: 042
     Dates: start: 20130410, end: 20130528
  4. SODIUM FOLINATE [Suspect]
     Indication: COLON CANCER
     Route: 042
     Dates: start: 20130410, end: 20130528
  5. DEXAMETHASON [Concomitant]
     Indication: PROPHYLAXIS
     Route: 042
     Dates: start: 20130410, end: 20130528
  6. DEXAMETHASON [Concomitant]
     Route: 048
     Dates: start: 20130410, end: 20130528
  7. ONDANSETRON [Concomitant]
     Indication: PROPHYLAXIS
     Route: 042
     Dates: start: 20130410, end: 20130528
  8. MCP [Concomitant]
     Indication: PROPHYLAXIS
     Route: 048
     Dates: start: 20130410
  9. RANITIDIN [Concomitant]
     Indication: PROPHYLAXIS
     Route: 048
     Dates: start: 20130410

REACTIONS (4)
  - Abdominal pain [Unknown]
  - Asthenia [Unknown]
  - Nausea [Unknown]
  - Gastrointestinal motility disorder [Unknown]
